FAERS Safety Report 21200501 (Version 3)
Quarter: 2022Q3

REPORT INFORMATION
  Report Type: Spontaneous
  Country: US (occurrence: US)
  Receive Date: 20220811
  Receipt Date: 20220817
  Transmission Date: 20221026
  Serious: Yes (Life-Threatening, Hospitalization, Other)
  Sender: FDA-Public Use
  Company Number: US-MLMSERVICE-20220729-3707364-1

PATIENT
  Sex: Male
  Weight: 2.4 kg

DRUGS (7)
  1. DIAZEPAM [Suspect]
     Active Substance: DIAZEPAM
     Indication: Muscle spasticity
     Dosage: 2.5 MG, 1X/DAY (AS NEEDED)
     Route: 064
  2. BACLOFEN [Suspect]
     Active Substance: BACLOFEN
     Indication: Muscle spasticity
     Dosage: 30 MG, 4X/DAY
     Route: 064
  3. BACLOFEN [Suspect]
     Active Substance: BACLOFEN
     Dosage: 0.125 MG/KG
     Route: 048
  4. ESCITALOPRAM [Concomitant]
     Active Substance: ESCITALOPRAM OXALATE
     Dosage: 10 MG, 1X/DAY
     Route: 064
  5. MIDODRINE [Concomitant]
     Active Substance: MIDODRINE
     Dosage: 5 MG, 1X/DAY
     Route: 064
  6. OXYBUTYNIN [Concomitant]
     Active Substance: OXYBUTYNIN
     Dosage: 5 MG, 1X/DAY
     Route: 064
  7. BUPROPION [Concomitant]
     Active Substance: BUPROPION
     Dosage: 300 MG, 1X/DAY
     Route: 064

REACTIONS (7)
  - Maternal exposure during pregnancy [Unknown]
  - Hypotonia neonatal [Recovered/Resolved]
  - Infantile apnoea [Recovered/Resolved]
  - Drug withdrawal syndrome neonatal [Recovered/Resolved]
  - Posturing [Recovered/Resolved]
  - Neonatal disorder [Unknown]
  - Premature baby [Unknown]
